FAERS Safety Report 4732368-0 (Version None)
Quarter: 2005Q3

REPORT INFORMATION
  Report Type: 
  Country: None (occurrence: None)
  Receive Date: 20050721
  Receipt Date: 20050523
  Transmission Date: 20060218
  Serious: No
  Sender: FDA-Public Use
  Company Number: 2005SP000929

PATIENT
  Age: 58 Year
  Sex: Male
  Weight: 88.4514 kg

DRUGS (1)
  1. LUNESTA [Suspect]
     Dosage: SEE IMAGE

REACTIONS (2)
  - DRUG INEFFECTIVE [None]
  - INSOMNIA [None]
